FAERS Safety Report 4446992-6 (Version None)
Quarter: 2004Q3

REPORT INFORMATION
  Report Type: 
  Country: None (occurrence: None)
  Receive Date: 20040812
  Receipt Date: 20040414
  Transmission Date: 20050211
  Serious: No
  Sender: FDA-Public Use
  Company Number: USA040464935

PATIENT
  Age: 36 Year
  Sex: Male

DRUGS (2)
  1. CIALIS [Suspect]
     Dosage: 20 MG
  2. PRILOSEC [Concomitant]

REACTIONS (3)
  - MUSCLE CRAMP [None]
  - MYALGIA [None]
  - PAIN [None]
